FAERS Safety Report 16607095 (Version 1)
Quarter: 2019Q3

REPORT INFORMATION
  Report Type: Spontaneous
  Country: US (occurrence: US)
  Receive Date: 20190722
  Receipt Date: 20190722
  Transmission Date: 20191004
  Serious: Yes (Other)
  Sender: FDA-Public Use
  Company Number: US-ALKEM LABORATORIES LIMITED-US-ALKEM-2019-03513

PATIENT
  Age: 34 Year
  Sex: Female

DRUGS (1)
  1. TRIAMCINOLONE ACETONIDE. [Suspect]
     Active Substance: TRIAMCINOLONE ACETONIDE
     Indication: CHORIORETINITIS
     Dosage: 4 MILLIGRAM, INJECTION, BIANNUALLY

REACTIONS (7)
  - Hypopyon [Recovered/Resolved]
  - Anterior chamber cell [Recovered/Resolved]
  - Intraocular pressure increased [Recovered/Resolved]
  - Cataract subcapsular [Recovered/Resolved]
  - Non-infectious endophthalmitis [Recovered/Resolved]
  - Exposure during pregnancy [Unknown]
  - Disease recurrence [Recovered/Resolved]
